FAERS Safety Report 9973641 (Version 1)
Quarter: 2014Q1

REPORT INFORMATION
  Report Type: Spontaneous
  Country: IT (occurrence: IT)
  Receive Date: 20140306
  Receipt Date: 20140306
  Transmission Date: 20141002
  Serious: Yes (Hospitalization)
  Sender: FDA-Public Use
  Company Number: PHHY2014IT024404

PATIENT
  Age: 20 Year
  Sex: Male

DRUGS (3)
  1. LOPERAMIDE [Suspect]
     Indication: DIARRHOEA
     Dosage: 2 MG, THREE TIMES OVER 6H
  2. LOPERAMIDE [Suspect]
     Dosage: 3 DF, 3X2MG OVER 6H
  3. LOPERAMIDE [Suspect]
     Dosage: 6 DF, 6X2MG AT NIGHT

REACTIONS (16)
  - Hyperhidrosis [Recovered/Resolved]
  - Delirium [Recovered/Resolved]
  - Confusional state [Recovered/Resolved]
  - Feeling abnormal [Recovered/Resolved]
  - Catatonia [Recovered/Resolved]
  - Hypokinesia [Recovered/Resolved]
  - Waxy flexibility [Recovered/Resolved]
  - Negativism [Recovered/Resolved]
  - Mutism [Recovered/Resolved]
  - Stupor [Recovered/Resolved]
  - Dysuria [Recovered/Resolved]
  - Hypertonia [Recovered/Resolved]
  - Urinary retention [Unknown]
  - Constipation [Recovered/Resolved]
  - Overdose [Unknown]
  - Diarrhoea [Recovered/Resolved]
